FAERS Safety Report 11536791 (Version 1)
Quarter: 2015Q3

REPORT INFORMATION
  Report Type: Spontaneous
  Country: SE (occurrence: SE)
  Receive Date: 20150922
  Receipt Date: 20150922
  Transmission Date: 20151125
  Serious: Yes (Hospitalization)
  Sender: FDA-Public Use
  Company Number: SE-PFIZER INC-2015312915

PATIENT
  Age: 64 Year
  Sex: Female

DRUGS (10)
  1. EFEXOR DEPOT [Suspect]
     Active Substance: VENLAFAXINE HYDROCHLORIDE
     Indication: BIPOLAR DISORDER
     Dosage: UNK
     Dates: start: 20081219
  2. FOLACIN [Concomitant]
     Active Substance: FOLIC ACID
  3. MINIRIN [Concomitant]
     Active Substance: DESMOPRESSIN ACETATE
  4. ORALOVITE [Concomitant]
  5. LAMOTRIGIN [Concomitant]
     Active Substance: LAMOTRIGINE
  6. ZOPIKLON [Concomitant]
     Active Substance: ZOPICLONE
  7. LAKTULOS MEDA [Concomitant]
     Route: 048
  8. INOLAXOL [Concomitant]
  9. CLOZAPINE 2CARE4 [Suspect]
     Active Substance: CLOZAPINE
     Indication: BIPOLAR DISORDER
     Dosage: 175 MG, DAILY
     Route: 048
     Dates: start: 20120523, end: 20130311
  10. BETOLVIDON [Concomitant]
     Active Substance: CYANOCOBALAMIN

REACTIONS (1)
  - Hypothermia [Recovered/Resolved]

NARRATIVE: CASE EVENT DATE: 20130228
